FAERS Safety Report 4674353-3 (Version None)
Quarter: 2005Q2

REPORT INFORMATION
  Report Type: 
  Country: None (occurrence: None)
  Receive Date: 20050524
  Receipt Date: 20050510
  Transmission Date: 20051028
  Serious: Yes (Hospitalization, Other)
  Sender: FDA-Public Use
  Company Number: US_990318710

PATIENT
  Age: 79 Year
  Sex: Female
  Weight: 50 kg

DRUGS (17)
  1. HUMALOG [Suspect]
     Indication: DIABETES MELLITUS
     Dates: start: 19960101
  2. HUMALOG [Suspect]
     Indication: DIABETES MELLITUS
     Dates: start: 19970101
  3. HUMULIN N [Suspect]
     Indication: DIABETES MELLITUS
     Dosage: 16 U/IN THE MORNING
     Dates: end: 20010925
  4. EVISTA [Suspect]
     Indication: OSTEOPENIA
     Dosage: 60 MG/1 DAY
     Dates: start: 20020729, end: 20020819
  5. HUMULIN R [Suspect]
     Indication: DIABETES MELLITUS
  6. HUMULIN-HUMAN INSULIN (RDNA) (HU [Suspect]
     Indication: DIABETES MELLITUS
  7. VEXOL (RIMEXOLONE) [Concomitant]
  8. ACULAR [Concomitant]
  9. NEPTAZANE (METHAZOLAMIDE) [Concomitant]
  10. LANTUS [Concomitant]
  11. CALCIUM WITH VITAMIN D [Concomitant]
  12. MULTI-VITAMIN [Concomitant]
  13. ASPIRIN [Concomitant]
  14. PREMARIN H-C VAGINAL CREAM [Concomitant]
  15. LOTENSIN [Concomitant]
  16. ALPHAGAN [Concomitant]
  17. LANTUS [Concomitant]

REACTIONS (26)
  - ACCIDENT [None]
  - ARTHRITIS [None]
  - BLOOD GLUCOSE DECREASED [None]
  - CATARACT [None]
  - DRUG EFFECT DECREASED [None]
  - DUODENAL ULCER [None]
  - ERUCTATION [None]
  - EYE HAEMORRHAGE [None]
  - EYE PAIN [None]
  - FALL [None]
  - FLATULENCE [None]
  - HAND FRACTURE [None]
  - HIP FRACTURE [None]
  - HYPERGLYCAEMIA [None]
  - HYPERTENSION [None]
  - INJECTION SITE HAEMORRHAGE [None]
  - INJECTION SITE PAIN [None]
  - INJECTION SITE RASH [None]
  - LOSS OF CONSCIOUSNESS [None]
  - MACULAR OEDEMA [None]
  - NEUROPATHY [None]
  - PERIPHERAL VASCULAR DISORDER [None]
  - POST PROCEDURAL COMPLICATION [None]
  - ROAD TRAFFIC ACCIDENT [None]
  - SOMNOLENCE [None]
  - WEIGHT DECREASED [None]
